FAERS Safety Report 10948469 (Version 2)
Quarter: 2015Q2

REPORT INFORMATION
  Report Type: Spontaneous
  Country: BR (occurrence: BR)
  Receive Date: 20150324
  Receipt Date: 20150506
  Transmission Date: 20150821
  Serious: Yes (Other)
  Sender: FDA-Public Use
  Company Number: BR-ROCHE-1553543

PATIENT
  Sex: Female
  Weight: 64 kg

DRUGS (2)
  1. XENICAL [Suspect]
     Active Substance: ORLISTAT
     Indication: OBESITY
     Dosage: FOR 4MONTHS
     Route: 065
     Dates: start: 2010, end: 2010
  2. ZOLPIDEM [Concomitant]
     Active Substance: ZOLPIDEM\ZOLPIDEM TARTRATE

REACTIONS (18)
  - Osteoarthritis [Not Recovered/Not Resolved]
  - Nasopharyngitis [Unknown]
  - Syncope [Unknown]
  - Hypertension [Unknown]
  - Bone disorder [Unknown]
  - Glucose tolerance impaired [Not Recovered/Not Resolved]
  - Constipation [Not Recovered/Not Resolved]
  - Liver disorder [Not Recovered/Not Resolved]
  - Urinary incontinence [Unknown]
  - Arthralgia [Unknown]
  - Hepatitis C [Not Recovered/Not Resolved]
  - Dysarthria [Unknown]
  - Enteritis infectious [Unknown]
  - Pain [Unknown]
  - Hyperthyroidism [Not Recovered/Not Resolved]
  - Diarrhoea [Unknown]
  - Anaemia [Not Recovered/Not Resolved]
  - Fall [Unknown]
